FAERS Safety Report 5193404-3 (Version None)
Quarter: 2006Q4

REPORT INFORMATION
  Report Type: 
  Country: None (occurrence: None)
  Receive Date: 20061228
  Receipt Date: 20060412
  Transmission Date: 20070319
  Serious: No
  Sender: FDA-Public Use
  Company Number: US-GLAXOSMITHKLINE-A0601601A

PATIENT
  Age: 60 Year
  Sex: Female

DRUGS (1)
  1. FLONASE [Suspect]
     Dosage: 1SPR SINGLE DOSE
     Route: 061
     Dates: start: 20060410, end: 20060410

REACTIONS (5)
  - ABNORMAL SENSATION IN EYE [None]
  - DRUG ADMINISTRATION ERROR [None]
  - EYE IRRITATION [None]
  - EYE PAIN [None]
  - LACRIMATION INCREASED [None]
